FAERS Safety Report 6371823-7 (Version None)
Quarter: 2009Q3

REPORT INFORMATION
  Report Type: 
  Country: None (occurrence: None)
  Receive Date: 20090923
  Receipt Date: 20090917
  Transmission Date: 20100115
  Serious: Yes (Other)
  Sender: FDA-Public Use
  Company Number: US-SANOFI-SYNTHELABO-A03200904171

PATIENT
  Sex: Male

DRUGS (12)
  1. EPOGEN [Concomitant]
     Indication: RENAL IMPAIRMENT
     Dosage: UNK
     Route: 065
  2. ALLOPURINOL [Concomitant]
     Indication: GOUTY ARTHRITIS
     Dosage: UNK
     Route: 048
     Dates: start: 20090801
  3. DIGOXIN [Concomitant]
     Indication: DRUG USE FOR UNKNOWN INDICATION
     Dosage: TAKEN ON MONDAY, WEDNESDAYS AND FRIDAYS
     Route: 048
  4. COUMADIN [Concomitant]
     Indication: THROMBOSIS PROPHYLAXIS
     Dosage: UNK
     Route: 048
  5. FLOMAX [Concomitant]
     Indication: PROSTATIC DISORDER
     Dosage: UNK
     Route: 048
  6. IRON [Concomitant]
     Indication: ANAEMIA
     Dosage: UNK
     Route: 048
     Dates: start: 20090801
  7. FOLIC ACID [Concomitant]
     Indication: DRUG USE FOR UNKNOWN INDICATION
     Dosage: UNK
     Route: 048
     Dates: start: 20090801
  8. ISOSORBIDE [Concomitant]
     Indication: CARDIAC DISORDER
     Dosage: UNK
     Route: 048
     Dates: start: 20090801
  9. LASIX [Concomitant]
     Indication: FLUID IMBALANCE
     Dosage: UNK
     Route: 048
  10. COREG [Concomitant]
     Indication: DRUG USE FOR UNKNOWN INDICATION
     Dosage: UNK
     Route: 048
  11. PROTONIX [Concomitant]
     Indication: GASTRIC DISORDER
     Dosage: UNK
     Route: 048
     Dates: start: 20040101
  12. MULTAQ [Suspect]
     Indication: ATRIAL FIBRILLATION
     Route: 048
     Dates: start: 20090101

REACTIONS (2)
  - FATIGUE [None]
  - HYPOTENSION [None]
